FAERS Safety Report 23312414 (Version 1)
Quarter: 2023Q4

REPORT INFORMATION
  Report Type: Spontaneous
  Country: US (occurrence: US)
  Receive Date: 20231219
  Receipt Date: 20231219
  Transmission Date: 20240110
  Serious: Yes (Hospitalization)
  Sender: FDA-Public Use
  Company Number: US-GLAXOSMITHKLINE-US2023173817

PATIENT

DRUGS (1)
  1. NUCALA [Suspect]
     Active Substance: MEPOLIZUMAB
     Indication: Product used for unknown indication
     Dosage: 100 MG, MO
     Dates: start: 20230301

REACTIONS (3)
  - Chronic obstructive pulmonary disease [Not Recovered/Not Resolved]
  - Asthma [Not Recovered/Not Resolved]
  - Product use issue [Unknown]
